FAERS Safety Report 8419359-3 (Version None)
Quarter: 2012Q2

REPORT INFORMATION
  Report Type: 
  Country: None (occurrence: None)
  Receive Date: 20120607
  Receipt Date: 20120604
  Transmission Date: 20120825
  Serious: Yes (Life-Threatening, Hospitalization)
  Sender: FDA-Public Use
  Company Number: JP-PFIZER INC-2012119642

PATIENT
  Sex: Male
  Weight: 47 kg

DRUGS (13)
  1. ACETAMINOPHEN [Concomitant]
     Indication: PAIN IN EXTREMITY
     Dosage: 400 MG, 3X/DAY
     Route: 048
  2. LYRICA [Suspect]
     Dosage: 75 MG, 2X/DAY
     Route: 048
     Dates: start: 20120418, end: 20120508
  3. SAIKOKEISHITOU [Concomitant]
     Indication: DERMATITIS ATOPIC
     Dosage: 5 G, 1X/DAY
     Route: 048
  4. LYRICA [Suspect]
     Indication: NEURALGIA
     Dosage: 75 MG, 1X/DAY
     Route: 048
     Dates: start: 20120416, end: 20120417
  5. BASEN [Concomitant]
     Indication: DIABETES MELLITUS
     Dosage: 0.2 MG, 2X/DAY
     Route: 048
  6. TAMSULOSIN HCL [Concomitant]
     Indication: BENIGN PROSTATIC HYPERPLASIA
     Dosage: 0.2 MG, 1X/DAY
     Route: 048
  7. JANUVIA [Concomitant]
     Indication: DIABETES MELLITUS
     Dosage: 50 MG, 1X/DAY
     Route: 048
     Dates: start: 20120419
  8. VITAMIN B12 [Concomitant]
     Indication: NEUROPATHY PERIPHERAL
     Dosage: 0.25 MG, 3X/DAY
  9. ADAPTINOL [Concomitant]
     Indication: RETINAL DEGENERATION
     Dosage: 5 MG, 3X/DAY
     Route: 048
  10. CETIRIZINE HYDROCHLORIDE [Concomitant]
     Indication: DERMATITIS ATOPIC
     Dosage: 10 MG, 1X/DAY
     Route: 048
  11. MEXITIL [Concomitant]
     Indication: DIABETIC NEUROPATHY
     Dosage: 50 MG, 3X/DAY
     Route: 048
  12. MUCOSTA [Concomitant]
     Indication: GASTRITIS
     Dosage: 0.5 G, 3X/DAY
     Route: 048
  13. JUMI-HAIDOKU-TO [Concomitant]
     Indication: DERMATITIS ATOPIC
     Dosage: 5 G, 1X/DAY
     Route: 048

REACTIONS (2)
  - VENTRICULAR TACHYCARDIA [None]
  - CARDIAC FAILURE CONGESTIVE [None]
